FAERS Safety Report 12770424 (Version 1)
Quarter: 2016Q3

REPORT INFORMATION
  Report Type: Spontaneous
  Country: US (occurrence: US)
  Receive Date: 20160917
  Receipt Date: 20160917
  Transmission Date: 20161109
  Serious: Yes (Hospitalization)
  Sender: FDA-Public Use
  Company Number: None

PATIENT
  Age: 15 Year
  Sex: Male
  Weight: 66.4 kg

DRUGS (6)
  1. METHOTREXATE. [Suspect]
     Active Substance: METHOTREXATE
     Dates: end: 20160902
  2. CYTARABINE. [Suspect]
     Active Substance: CYTARABINE
     Dates: end: 20160822
  3. ONCASPAR [Suspect]
     Active Substance: PEGASPARGASE
     Dates: end: 20160826
  4. CYCLOPHOSPHAMIDE. [Suspect]
     Active Substance: CYCLOPHOSPHAMIDE
     Dates: end: 20160812
  5. MERCAPTOPURINE. [Suspect]
     Active Substance: MERCAPTOPURINE
     Dates: end: 20160825
  6. VINCRISTINE SULFATE. [Suspect]
     Active Substance: VINCRISTINE SULFATE
     Dates: end: 20160902

REACTIONS (2)
  - Abdominal pain [None]
  - Appendicitis [None]

NARRATIVE: CASE EVENT DATE: 20160913
